FAERS Safety Report 7291500-8 (Version None)
Quarter: 2011Q1

REPORT INFORMATION
  Report Type: 
  Country: None (occurrence: None)
  Receive Date: 20110214
  Receipt Date: 20110207
  Transmission Date: 20110831
  Serious: Yes (Hospitalization, Other)
  Sender: FDA-Public Use
  Company Number: FR-PFIZER INC-2011026668

PATIENT
  Age: 52 Year
  Sex: Male

DRUGS (60)
  1. VINCRISTINE SULFATE [Concomitant]
     Dosage: UNK
     Route: 042
     Dates: start: 20100816, end: 20100816
  2. SPASFON [Concomitant]
     Dosage: UNK
     Route: 042
     Dates: start: 20100804, end: 20101001
  3. PENTACARINAT ^AVENTIS^ [Concomitant]
     Dosage: UNK
     Dates: start: 20100825, end: 20100825
  4. VANCOMYCIN [Concomitant]
     Dosage: 1 G, 2X/DAY
     Route: 042
     Dates: start: 20100804, end: 20100805
  5. VANCOMYCIN [Concomitant]
     Dosage: 1.5 G, 2X/DAY
     Route: 042
     Dates: start: 20100818, end: 20100910
  6. ENDOXAN [Concomitant]
     Dosage: 550 MG, UNK
     Route: 042
     Dates: start: 20100823, end: 20100826
  7. DEPO-MEDROL [Suspect]
     Dosage: UNK
     Route: 037
     Dates: start: 20100809, end: 20100826
  8. EMEND [Suspect]
     Dosage: UNK
     Route: 048
     Dates: start: 20100809
  9. GAVISCON [Concomitant]
     Dosage: 2 DF, 3X/DAY
     Route: 048
     Dates: start: 20101017
  10. PRIMPERAN TAB [Concomitant]
     Dosage: 1 DF, 3X/DAY
     Route: 042
     Dates: start: 20100827, end: 20100910
  11. ZELITREX [Concomitant]
     Dosage: 1 DF, 2X/DAY
     Route: 048
     Dates: start: 20100813, end: 20100818
  12. HUMALOG [Concomitant]
     Dosage: UNK
     Route: 058
     Dates: start: 20101001
  13. LEVIMIR [Concomitant]
     Dosage: UNK
     Route: 058
     Dates: start: 20101001
  14. SCOPOLAMINE [Concomitant]
     Dosage: UNK
     Route: 062
     Dates: start: 20100901, end: 20100910
  15. AZACTAM [Concomitant]
     Dosage: 1 G, 3X/DAY
     Route: 051
     Dates: start: 20100813, end: 20100821
  16. CORTANCYL [Suspect]
     Indication: ACUTE LYMPHOCYTIC LEUKAEMIA
     Dosage: UNK
     Route: 048
     Dates: start: 20100802, end: 20100808
  17. OXYCODONE HCL [Concomitant]
     Dosage: UNK
     Route: 042
     Dates: end: 20100905
  18. PENTACARINAT ^AVENTIS^ [Concomitant]
     Dosage: UNK
     Dates: start: 20100812, end: 20100812
  19. ZOPHREN [Concomitant]
     Dosage: 8 MG, 2X/DAY
     Route: 042
     Dates: start: 20100809, end: 20100811
  20. VANCOMYCIN [Concomitant]
     Dosage: 1.25 G, 2X/DAY
     Dates: start: 20100813, end: 20100817
  21. CERUBIDIN [Concomitant]
     Dosage: UNK
     Route: 042
     Dates: start: 20100823, end: 20100824
  22. HEPARIN SODIUM [Concomitant]
     Dosage: UNK
     Route: 042
     Dates: start: 20100828, end: 20100908
  23. TRANXENE [Concomitant]
     Dosage: UNK
     Route: 048
     Dates: start: 20100828, end: 20100829
  24. GAVISCON [Concomitant]
     Dosage: 1 DF, 3X/DAY
     Route: 048
     Dates: start: 20100814, end: 20100819
  25. HUMALOG [Concomitant]
     Dosage: UNK
     Route: 058
     Dates: end: 20100823
  26. ZOPHREN [Concomitant]
     Dosage: 8 MG, 2X/DAY
     Route: 042
     Dates: start: 20100816, end: 20100816
  27. ZOPHREN [Concomitant]
     Dosage: 8 MG, 2X/DAY
     Route: 042
     Dates: start: 20100823, end: 20100826
  28. FASTURTEC [Concomitant]
     Dosage: UNK
     Route: 042
     Dates: start: 20100805, end: 20100806
  29. CORTANCYL [Suspect]
     Dosage: UNK
     Route: 048
     Dates: start: 20100808, end: 20100822
  30. EMEND [Suspect]
     Dosage: UNK
     Route: 048
     Dates: end: 20100820
  31. CYTARABINE [Concomitant]
     Dosage: 40 MG, UNK
     Route: 037
     Dates: start: 20100809, end: 20100826
  32. CIFLOX [Concomitant]
     Dosage: 400 MG, 2X/DAY
     Route: 042
     Dates: start: 20100822, end: 20100823
  33. OXYCODONE HCL [Concomitant]
     Dosage: UNK
     Route: 042
     Dates: start: 20100821, end: 20100831
  34. ATARAX [Concomitant]
     Dosage: UNK
     Route: 042
     Dates: start: 20100805, end: 20100805
  35. FASTURTEC [Concomitant]
     Dosage: UNK
     Route: 042
     Dates: start: 20100802, end: 20100803
  36. KIDROLASE [Suspect]
     Indication: ACUTE LYMPHOCYTIC LEUKAEMIA
     Dosage: 11000 IU, 1X/DAY
     Route: 042
     Dates: start: 20100828, end: 20100906
  37. AMBISOME [Suspect]
     Dosage: 50 MG, ALTERNATE DAY
     Route: 042
     Dates: start: 20100813, end: 20100914
  38. VINCRISTINE SULFATE [Concomitant]
     Dosage: UNK
     Route: 042
     Dates: start: 20100823, end: 20100823
  39. ACTRAPID [Concomitant]
     Dosage: UNK
     Route: 042
     Dates: start: 20100908, end: 20100930
  40. ZOVIRAX [Concomitant]
     Dosage: 500 MG, UNK
     Route: 042
     Dates: start: 20100818, end: 20100908
  41. SERESTA [Concomitant]
     Dosage: 10 MG, 4X/DAY
     Dates: end: 20100911
  42. CONTRAMAL [Concomitant]
     Dosage: 100 MG, UNK
     Route: 042
     Dates: start: 20100801, end: 20101024
  43. OXYCODONE HCL [Concomitant]
     Dosage: UNK
     Route: 042
     Dates: end: 20100908
  44. XANAX [Concomitant]
     Dosage: UNK
     Route: 048
     Dates: start: 20100814, end: 20100828
  45. METHOTREXATE SODIUM [Concomitant]
     Dosage: 15 MG, UNK
     Route: 037
     Dates: start: 20100809, end: 20100826
  46. PRIMPERAN TAB [Concomitant]
     Dosage: 1 DF, 1X/DAY
     Route: 042
     Dates: start: 20100920, end: 20100921
  47. LANTUS [Concomitant]
     Dosage: UNK
     Route: 058
     Dates: end: 20100908
  48. LASIX [Concomitant]
     Dosage: 2 MG, 2X/DAY
     Route: 042
     Dates: start: 20100909, end: 20100910
  49. SERESTA [Concomitant]
     Dosage: UNK
     Route: 048
     Dates: start: 20101017
  50. TIENAM [Concomitant]
     Dosage: 500 MG, 3X/DAY
     Route: 042
     Dates: start: 20100909, end: 20100915
  51. VINCRISTINE SULFATE [Concomitant]
     Dosage: UNK
     Route: 042
     Dates: start: 20100809, end: 20100809
  52. VINCRISTINE SULFATE [Concomitant]
     Dosage: UNK
     Route: 042
     Dates: start: 20100830, end: 20100830
  53. TRANXENE [Concomitant]
     Dosage: UNK
     Route: 048
     Dates: start: 20100804, end: 20100812
  54. MOPRAL [Concomitant]
     Dosage: UNK
     Route: 042
     Dates: start: 20100803, end: 20100910
  55. ACUPAN [Concomitant]
     Dosage: UNK
     Route: 042
     Dates: start: 20100804
  56. STILNOX [Concomitant]
     Dosage: 10 MG, 1X/DAY
     Route: 048
     Dates: end: 20100910
  57. TIENAM [Concomitant]
     Dosage: 1 G, 3X/DAY
     Dates: start: 20100822, end: 20100908
  58. GRANOCYTE [Concomitant]
     Dosage: 1 DF, 1X/DAY
     Route: 058
     Dates: start: 20100826, end: 20100910
  59. ENDOXAN [Concomitant]
     Dosage: UNK
     Route: 042
     Dates: start: 20100809, end: 20100809
  60. CERUBIDIN [Concomitant]
     Dosage: UNK
     Route: 042
     Dates: start: 20100809, end: 20100811

REACTIONS (5)
  - BONE MARROW FAILURE [None]
  - DIABETES MELLITUS INADEQUATE CONTROL [None]
  - BACTERIAL SEPSIS [None]
  - COAGULOPATHY [None]
  - HEPATOCELLULAR INJURY [None]
